FAERS Safety Report 5588402-1 (Version None)
Quarter: 2008Q1

REPORT INFORMATION
  Report Type: 
  Country: None (occurrence: None)
  Receive Date: 20080111
  Receipt Date: 20071112
  Transmission Date: 20080703
  Serious: No
  Sender: FDA-Public Use
  Company Number: A0693943A

PATIENT
  Age: 51 Year
  Sex: Female

DRUGS (3)
  1. TYKERB [Suspect]
     Indication: BREAST CANCER
     Dosage: 5TAB PER DAY
     Route: 048
     Dates: start: 20070910
  2. CHEMOTHERAPY [Concomitant]
  3. SYNTHROID [Concomitant]

REACTIONS (6)
  - DIARRHOEA [None]
  - FEELING ABNORMAL [None]
  - PANIC ATTACK [None]
  - PARAESTHESIA [None]
  - PHARMACEUTICAL PRODUCT COMPLAINT [None]
  - THROAT TIGHTNESS [None]
